FAERS Safety Report 9008699 (Version 1)
Quarter: 2013Q1

REPORT INFORMATION
  Report Type: Spontaneous
  Country: US (occurrence: US)
  Receive Date: 20130111
  Receipt Date: 20130111
  Transmission Date: 20140127
  Serious: Yes (Hospitalization)
  Sender: FDA-Public Use
  Company Number: US-ELI_LILLY_AND_COMPANY-US201301002775

PATIENT
  Age: 59 Year
  Sex: Male

DRUGS (2)
  1. ADCIRCA [Suspect]
     Dosage: 20 MG, QD
  2. CIALIS [Suspect]
     Dosage: 3 DF, UNKNOWN

REACTIONS (4)
  - Cardiac fibrillation [Unknown]
  - Dyspnoea [Unknown]
  - Intentional drug misuse [Unknown]
  - Off label use [Unknown]
